FAERS Safety Report 5141966-4 (Version None)
Quarter: 2006Q4

REPORT INFORMATION
  Report Type: 
  Country: None (occurrence: None)
  Receive Date: 20061102
  Receipt Date: 20060912
  Transmission Date: 20070319
  Serious: Yes (Other)
  Sender: FDA-Public Use
  Company Number: PHBS2006JP14151

PATIENT
  Age: 74 Year
  Sex: Male

DRUGS (5)
  1. LOXONIN [Suspect]
     Indication: INFECTED EPIDERMAL CYST
     Dosage: 180 MG/D
     Route: 048
     Dates: start: 20060817, end: 20060819
  2. LEVOFLOXACIN [Suspect]
     Indication: INFECTED EPIDERMAL CYST
     Dosage: 300 MG/D
     Route: 048
     Dates: start: 20060829, end: 20060831
  3. DOVONEX [Concomitant]
     Indication: PSORIASIS
     Route: 061
     Dates: start: 20050301
  4. LIDOMEX [Concomitant]
     Indication: PSORIASIS
     Route: 061
     Dates: start: 20050509
  5. LAMISIL [Suspect]
     Indication: NAIL TINEA
     Dosage: 125 MG/D
     Route: 048
     Dates: start: 20060214, end: 20060909

REACTIONS (5)
  - BLOOD CREATINE PHOSPHOKINASE INCREASED [None]
  - MALAISE [None]
  - MYALGIA [None]
  - MYOGLOBIN BLOOD INCREASED [None]
  - MYOGLOBIN URINE PRESENT [None]
